FAERS Safety Report 17562580 (Version 9)
Quarter: 2025Q1

REPORT INFORMATION
  Report Type: Report from Study
  Country: DE (occurrence: DE)
  Receive Date: 20200319
  Receipt Date: 20250328
  Transmission Date: 20250409
  Serious: No
  Sender: TAKEDA
  Company Number: DE-SHIRE-DE202010385

PATIENT
  Age: 21 Year
  Sex: Male
  Weight: 82.993 kg

DRUGS (13)
  1. TEDUGLUTIDE [Suspect]
     Active Substance: TEDUGLUTIDE
     Indication: Short-bowel syndrome
     Dosage: 4.2 MILLIGRAM, QD
     Dates: start: 20180921, end: 20221006
  2. TEDUGLUTIDE [Suspect]
     Active Substance: TEDUGLUTIDE
     Dosage: 4.2 MILLIGRAM, QD
     Dates: start: 20221007
  3. TEDUGLUTIDE [Suspect]
     Active Substance: TEDUGLUTIDE
  4. TEDUGLUTIDE [Suspect]
     Active Substance: TEDUGLUTIDE
  5. PROPOFOL [Concomitant]
     Active Substance: PROPOFOL
     Indication: Colonoscopy
     Dosage: 350 MILLIGRAM, SINGLE
     Dates: start: 20200812, end: 20200812
  6. PROPOFOL [Concomitant]
     Active Substance: PROPOFOL
     Indication: Endoscopy upper gastrointestinal tract
  7. LOPERAMIDE [Concomitant]
     Active Substance: LOPERAMIDE
     Indication: Diarrhoea
     Dosage: 4 MILLIGRAM, TID
     Dates: end: 20200810
  8. LOPERAMIDE [Concomitant]
     Active Substance: LOPERAMIDE
  9. LOPERAMIDE [Concomitant]
     Active Substance: LOPERAMIDE
     Dosage: 4 MILLIGRAM, QD
  10. PANTOPRAZOLE [Concomitant]
     Active Substance: PANTOPRAZOLE
     Indication: Antacid therapy
     Dosage: 80 MILLIGRAM, BID
  11. PANTOPRAZOLE [Concomitant]
     Active Substance: PANTOPRAZOLE
     Dosage: 40 MILLIGRAM, BID
  12. FOLIC ACID [Concomitant]
     Active Substance: FOLIC ACID
     Indication: Folate deficiency
     Dosage: 5 MILLIGRAM, QD
     Dates: start: 201811
  13. VITAMIN B12 [Concomitant]
     Active Substance: CYANOCOBALAMIN
     Indication: Vitamin B12 deficiency
     Dosage: 1 MILLIGRAM, MONTHLY
     Dates: start: 20190820, end: 20191119

REACTIONS (4)
  - Pseudolymphoma [Recovered/Resolved]
  - Large intestine polyp [Recovered/Resolved]
  - Prothrombin time ratio decreased [Recovered/Resolved]
  - Magnesium deficiency [Recovered/Resolved]

NARRATIVE: CASE EVENT DATE: 20190801
